FAERS Safety Report 25632308 (Version 2)
Quarter: 2025Q3

REPORT INFORMATION
  Report Type: Spontaneous
  Country: US (occurrence: US)
  Receive Date: 20250801
  Receipt Date: 20250806
  Transmission Date: 20251020
  Serious: No
  Sender: APOTEX
  Company Number: US-APOTEX-2025AP010818

PATIENT
  Sex: Female

DRUGS (1)
  1. CYCLOSPORINE [Suspect]
     Active Substance: CYCLOSPORINE
     Indication: Product used for unknown indication
     Dosage: BID (EACH EYE TWICE DAILY)
     Route: 047
     Dates: start: 2025

REACTIONS (3)
  - Product dose omission issue [Unknown]
  - Vision blurred [Unknown]
  - Eye irritation [Unknown]
